FAERS Safety Report 15867643 (Version 2)
Quarter: 2019Q1

REPORT INFORMATION
  Report Type: Spontaneous
  Country: GB (occurrence: GB)
  Receive Date: 20190125
  Receipt Date: 20190226
  Transmission Date: 20190417
  Serious: Yes (Life-Threatening, Hospitalization, Other)
  Sender: FDA-Public Use
  Company Number: GB-TAKEDA-2019TUS002844

PATIENT
  Age: 76 Year
  Sex: Female

DRUGS (19)
  1. METOLAZONE. [Concomitant]
     Active Substance: METOLAZONE
     Dosage: UNK
     Route: 065
  2. DIGOXIN. [Concomitant]
     Active Substance: DIGOXIN
     Dosage: UNK
     Route: 065
  3. ALENDRONIC ACID                    /01220302/ [Concomitant]
     Dosage: 70 MILLIGRAM, 1/WEEK
     Route: 065
  4. RAMIPRIL. [Concomitant]
     Active Substance: RAMIPRIL
     Dosage: 5 MILLIGRAM, QD
     Route: 065
  5. DILTIAZEM. [Concomitant]
     Active Substance: DILTIAZEM
     Dosage: UNK
     Route: 065
  6. ALENDRONIC ACID                    /01220302/ [Concomitant]
     Dosage: 10 MILLIGRAM, QD
     Route: 065
  7. GLICLAZIDE [Concomitant]
     Active Substance: GLICLAZIDE
     Dosage: 160 MILLIGRAM, QD
     Route: 065
  8. CEFALEXIN [Concomitant]
     Active Substance: CEPHALEXIN
     Dosage: 250 MILLIGRAM, QD
     Route: 065
  9. CARBOCISTEINE [Concomitant]
     Active Substance: CARBOCYSTEINE
     Dosage: 2250 MILLIGRAM, QD
     Route: 065
  10. LANSOPRAZOLE. [Concomitant]
     Active Substance: LANSOPRAZOLE
     Dosage: 30 MILLIGRAM, QD
     Route: 065
  11. BISOPROLOL [Concomitant]
     Active Substance: BISOPROLOL
     Dosage: 10 MILLIGRAM, QD
     Route: 065
  12. COCODAMOL [Concomitant]
     Active Substance: ACETAMINOPHEN\CODEINE PHOSPHATE
     Dosage: 300/500 MG,UNK
     Route: 065
  13. FEBUXOSTAT. [Suspect]
     Active Substance: FEBUXOSTAT
     Indication: GOUT
     Dosage: 40 MILLIGRAM
     Route: 048
     Dates: start: 20180716
  14. NOVOMIX [Concomitant]
     Active Substance: INSULIN ASPART
     Dosage: 20 INTERNATIONAL UNIT, QD
     Route: 065
  15. BUMETANIDE. [Concomitant]
     Active Substance: BUMETANIDE
     Dosage: 1 MILLIGRAM, QD
     Route: 065
  16. FEBUXOSTAT. [Suspect]
     Active Substance: FEBUXOSTAT
     Dosage: 80 MILLIGRAM
     Route: 048
     Dates: start: 20180716, end: 201808
  17. EPLERENONE. [Concomitant]
     Active Substance: EPLERENONE
     Dosage: 25 MILLIGRAM, QD
     Route: 065
  18. GABAPENTIN. [Concomitant]
     Active Substance: GABAPENTIN
     Dosage: UNK
     Route: 065
  19. ATORVASTATIN [Concomitant]
     Active Substance: ATORVASTATIN
     Dosage: 10 MILLIGRAM
     Route: 065

REACTIONS (7)
  - Atrial fibrillation [Recovered/Resolved]
  - Left ventricular dysfunction [Recovered/Resolved]
  - Chest pain [Recovered/Resolved]
  - Inappropriate schedule of product administration [Recovered/Resolved]
  - Palpitations [Recovered/Resolved]
  - Acute myocardial infarction [Recovered/Resolved]
  - Product prescribing error [Recovered/Resolved]

NARRATIVE: CASE EVENT DATE: 20180716
